FAERS Safety Report 10891265 (Version 1)
Quarter: 2015Q1

REPORT INFORMATION
  Report Type: Spontaneous
  Country: CA (occurrence: CA)
  Receive Date: 20150306
  Receipt Date: 20150306
  Transmission Date: 20150721
  Serious: Yes (Life-Threatening)
  Sender: FDA-Public Use
  Company Number: CA-009507513-1503CAN000999

PATIENT
  Age: 64 Year
  Sex: Male

DRUGS (2)
  1. TEMODAL [Suspect]
     Active Substance: TEMOZOLOMIDE
     Indication: RENAL DISORDER
     Dosage: UNK
     Route: 048
  2. TEMODAL [Suspect]
     Active Substance: TEMOZOLOMIDE
     Indication: LIVER DISORDER

REACTIONS (6)
  - Asthenia [Not Recovered/Not Resolved]
  - Vomiting [Not Recovered/Not Resolved]
  - Terminal state [Not Recovered/Not Resolved]
  - Gallbladder disorder [Not Recovered/Not Resolved]
  - General physical health deterioration [Not Recovered/Not Resolved]
  - Chromaturia [Not Recovered/Not Resolved]
